FAERS Safety Report 6263307-1 (Version None)
Quarter: 2009Q3

REPORT INFORMATION
  Report Type: 
  Country: None (occurrence: None)
  Receive Date: 20090710
  Receipt Date: 20090422
  Transmission Date: 20100115
  Serious: No
  Sender: FDA-Public Use
  Company Number: A0780130A

PATIENT
  Age: 68 Year
  Sex: Male

DRUGS (8)
  1. REQUIP XL [Suspect]
     Indication: PARKINSON'S DISEASE
     Dosage: 8MG PER DAY
     Route: 048
     Dates: start: 20090201
  2. AMANTADINE HCL [Concomitant]
  3. SINEMET [Concomitant]
  4. HEART MEDICATION [Concomitant]
  5. CARBIDOPA [Concomitant]
  6. HYDROCHLOROTHIAZIDE [Concomitant]
  7. FLOMAX [Concomitant]
  8. INDERAL [Concomitant]

REACTIONS (3)
  - CHEST DISCOMFORT [None]
  - DYSPNOEA [None]
  - THERAPEUTIC RESPONSE UNEXPECTED [None]
